FAERS Safety Report 25993812 (Version 1)
Quarter: 2025Q4

REPORT INFORMATION
  Report Type: Spontaneous
  Country: US (occurrence: US)
  Receive Date: 20251104
  Receipt Date: 20251104
  Transmission Date: 20260118
  Serious: No
  Sender: CURRAX PHARMACEUTICALS
  Company Number: US-CURRAX PHARMACEUTICALS LLC-US-2025CUR001861

PATIENT
  Age: 69 Year
  Sex: Female

DRUGS (1)
  1. CONTRAVE [Suspect]
     Active Substance: BUPROPION HYDROCHLORIDE\NALTREXONE HYDROCHLORIDE
     Indication: Weight control
     Dosage: STRENGTH: 8/90 MG, TOOK IN THE MORNING WITH FOOD, NO FATTY FOODS.
     Route: 065
     Dates: start: 202508, end: 2025

REACTIONS (5)
  - Dermatitis [Recovered/Resolved]
  - Scab [Recovered/Resolved]
  - Hyperhidrosis [Recovered/Resolved]
  - Rash erythematous [Recovered/Resolved]
  - Alopecia [Recovered/Resolved]

NARRATIVE: CASE EVENT DATE: 20250801
